FAERS Safety Report 6783412-0 (Version None)
Quarter: 2010Q2

REPORT INFORMATION
  Report Type: 
  Country: None (occurrence: None)
  Receive Date: 20100622
  Receipt Date: 20100607
  Transmission Date: 20101027
  Serious: Yes (Other)
  Sender: FDA-Public Use
  Company Number: CA-ASTRAZENECA-2008UW22151

PATIENT
  Age: 65 Year
  Sex: Male

DRUGS (5)
  1. CRESTOR [Suspect]
     Route: 048
     Dates: start: 20070320
  2. ENALAPRIL MALEATE [Concomitant]
  3. BETOPTIC [Concomitant]
  4. AZOPT [Concomitant]
  5. NAPROXEN [Concomitant]

REACTIONS (42)
  - ABDOMINAL DISTENSION [None]
  - ABDOMINAL PAIN UPPER [None]
  - ASTHENIA [None]
  - BACK PAIN [None]
  - BREATH ODOUR [None]
  - CHEST DISCOMFORT [None]
  - CHILLS [None]
  - CHROMATURIA [None]
  - CONSTIPATION [None]
  - COUGH [None]
  - DECREASED APPETITE [None]
  - DIARRHOEA [None]
  - DIZZINESS [None]
  - DRY MOUTH [None]
  - DYSPEPSIA [None]
  - DYSPHONIA [None]
  - DYSPNOEA [None]
  - DYSURIA [None]
  - ERUCTATION [None]
  - FALL [None]
  - FATIGUE [None]
  - FLATULENCE [None]
  - GASTROINTESTINAL MOTILITY DISORDER [None]
  - HEADACHE [None]
  - HYPERCHLORHYDRIA [None]
  - HYPERHIDROSIS [None]
  - HYPOKINESIA [None]
  - INJURY [None]
  - INSOMNIA [None]
  - IRRITABILITY [None]
  - MALAISE [None]
  - MICTURITION URGENCY [None]
  - MYALGIA [None]
  - NAUSEA [None]
  - PAIN [None]
  - PARAESTHESIA [None]
  - POLLAKIURIA [None]
  - PRURITUS [None]
  - RHABDOMYOLYSIS [None]
  - RHINORRHOEA [None]
  - SOMNOLENCE [None]
  - VOMITING [None]
